FAERS Safety Report 4735857-8 (Version None)
Quarter: 2005Q3

REPORT INFORMATION
  Report Type: 
  Country: None (occurrence: None)
  Receive Date: 20050805
  Receipt Date: 20050725
  Transmission Date: 20060218
  Serious: Yes (Other)
  Sender: FDA-Public Use
  Company Number: US-JNJFOC-20050705469

PATIENT
  Sex: Female

DRUGS (16)
  1. FENTANYL [Suspect]
     Route: 062
  2. FENTANYL [Suspect]
     Route: 062
  3. ISOSORBIDE [Concomitant]
     Indication: ANGINA PECTORIS
     Route: 048
  4. ACCUPRIL [Concomitant]
     Indication: HYPERTENSION
     Route: 048
  5. LIPITOR [Concomitant]
     Route: 048
  6. PREMARIN [Concomitant]
     Route: 067
  7. LORATADINE [Concomitant]
     Route: 048
  8. UROQUID ACID [Concomitant]
     Indication: BACTERIURIA
     Dosage: 500 MG/500 MG  - 2 TABLETS IN 24 HOURS
     Route: 048
  9. KLOR-CON [Concomitant]
     Route: 048
  10. LASIX [Concomitant]
     Indication: HYPERTENSION
     Route: 048
  11. PRILOSEC [Concomitant]
     Route: 048
  12. TEMAZEPAM [Concomitant]
     Indication: INSOMNIA
     Route: 048
  13. LEXAPRO [Concomitant]
     Indication: ANXIETY
     Route: 048
  14. ALPRAZOLAM [Concomitant]
     Indication: ANXIETY
     Route: 048
  15. WELLBUTRIN SR [Concomitant]
     Indication: DEPRESSION
     Route: 048
  16. TRICOR [Concomitant]
     Route: 048

REACTIONS (3)
  - APPLICATION SITE VESICLES [None]
  - CONVULSION [None]
  - PHARMACEUTICAL PRODUCT COMPLAINT [None]
